FAERS Safety Report 13385209 (Version 2)
Quarter: 2017Q2

REPORT INFORMATION
  Report Type: Spontaneous
  Country: US (occurrence: US)
  Receive Date: 20170329
  Receipt Date: 20170427
  Transmission Date: 20170830
  Serious: Yes (Hospitalization)
  Sender: FDA-Public Use
  Company Number: US-BEH-2017079186

PATIENT
  Sex: Female
  Weight: 56.24 kg

DRUGS (30)
  1. LMX                                /00033401/ [Concomitant]
  2. OMEPRAZOLE. [Concomitant]
     Active Substance: OMEPRAZOLE
  3. PULMICORT TURBUHALER [Concomitant]
     Active Substance: BUDESONIDE
  4. IPRATROPIUM [Concomitant]
     Active Substance: IPRATROPIUM
  5. ACETAMINOPHEN. [Concomitant]
     Active Substance: ACETAMINOPHEN
  6. OXYGEN. [Concomitant]
     Active Substance: OXYGEN
  7. LASIX [Concomitant]
     Active Substance: FUROSEMIDE
  8. PRESERVISION [Concomitant]
     Active Substance: MINERALS\VITAMINS
  9. MYCAMINE [Concomitant]
     Active Substance: MICAFUNGIN SODIUM
  10. NIFEDIPINE. [Concomitant]
     Active Substance: NIFEDIPINE
  11. NEURONTIN [Concomitant]
     Active Substance: GABAPENTIN
  12. ASPIRIN. [Concomitant]
     Active Substance: ASPIRIN
  13. PREDNISONE. [Concomitant]
     Active Substance: PREDNISONE
  14. LISINOPRIL. [Concomitant]
     Active Substance: LISINOPRIL
  15. ZANTAC [Concomitant]
     Active Substance: RANITIDINE HYDROCHLORIDE
  16. METOPROLOL TARTRATE. [Concomitant]
     Active Substance: METOPROLOL TARTRATE
  17. CEFTRIAXONE. [Concomitant]
     Active Substance: CEFTRIAXONE
  18. DIPHENHYDRAMINE. [Concomitant]
     Active Substance: DIPHENHYDRAMINE
  19. ALBUTEROL                          /00139501/ [Concomitant]
     Active Substance: ALBUTEROL
  20. AMPICILLIN AND SULBACTAM [Concomitant]
     Active Substance: AMPICILLIN SODIUM\SULBACTAM SODIUM
  21. ANTIBIOTICS [Concomitant]
     Active Substance: UNSPECIFIED INGREDIENT
     Route: 042
  22. ZALEPLON. [Concomitant]
     Active Substance: ZALEPLON
  23. CALCIUM 600+D                      /00944201/ [Concomitant]
  24. VITAMIN D                          /00107901/ [Concomitant]
     Active Substance: ERGOCALCIFEROL
  25. HYDROCODONE W/APAP                 /00607101/ [Concomitant]
  26. LANTUS [Concomitant]
     Active Substance: INSULIN GLARGINE
  27. SYNTHROID [Concomitant]
     Active Substance: LEVOTHYROXINE SODIUM
  28. HIZENTRA [Suspect]
     Active Substance: HUMAN IMMUNOGLOBULIN G
     Indication: PRODUCT USED FOR UNKNOWN INDICATION
     Dosage: 10 G, QW
     Route: 058
     Dates: start: 20130701
  29. EPIPEN [Concomitant]
     Active Substance: EPINEPHRINE
  30. ONDANSETRON [Concomitant]
     Active Substance: ONDANSETRON

REACTIONS (1)
  - Thrombosis [Unknown]
